FAERS Safety Report 5255572-4 (Version None)
Quarter: 2007Q1

REPORT INFORMATION
  Report Type: 
  Country: None (occurrence: None)
  Receive Date: 20070305
  Receipt Date: 20070228
  Transmission Date: 20070707
  Serious: Yes (Life-Threatening)
  Sender: FDA-Public Use
  Company Number: 2007AP01111

PATIENT
  Age: 25629 Day
  Sex: Female
  Weight: 66 kg

DRUGS (7)
  1. CRESTOR [Suspect]
     Indication: HYPERCHOLESTEROLAEMIA
     Route: 048
     Dates: start: 20061120, end: 20061228
  2. LOCHOL [Concomitant]
     Indication: HYPERCHOLESTEROLAEMIA
     Route: 048
     Dates: start: 20030409, end: 20061120
  3. LOCHOL [Concomitant]
     Indication: HEPATIC FUNCTION ABNORMAL
     Route: 048
     Dates: start: 20030409, end: 20061120
  4. UNKNOWN DRUG [Concomitant]
     Indication: CHRONIC SINUSITIS
     Route: 048
     Dates: start: 20030414, end: 20061228
  5. GATIFLOXACIN [Concomitant]
     Indication: BRONCHITIS
     Route: 048
     Dates: start: 20061228, end: 20070102
  6. NEUTASE [Concomitant]
     Indication: BRONCHITIS
     Route: 048
     Dates: start: 20061228, end: 20070102
  7. KENTAN [Concomitant]
     Indication: BRONCHITIS
     Route: 048
     Dates: start: 20061228, end: 20070109

REACTIONS (2)
  - PLATELET COUNT DECREASED [None]
  - URTICARIA [None]
